FAERS Safety Report 9648043 (Version 1)
Quarter: 2013Q4

REPORT INFORMATION
  Report Type: Spontaneous
  Country: US (occurrence: US)
  Receive Date: 20131028
  Receipt Date: 20131028
  Transmission Date: 20140711
  Serious: No
  Sender: FDA-Public Use
  Company Number: US-PFIZER INC-2013304188

PATIENT
  Age: 40 Year
  Sex: Male
  Weight: 81.63 kg

DRUGS (3)
  1. ZOLOFT [Suspect]
     Indication: DEPRESSION
     Dosage: 30 MG, 1X/DAY
     Dates: end: 2013
  2. CYMBALTA [Suspect]
     Indication: DEPRESSION
     Dosage: 30 MG, 1X/DAY
     Dates: start: 2013
  3. LISINOPRIL [Concomitant]
     Indication: HYPERTENSION
     Dosage: 40 MG, 1X/DAY

REACTIONS (1)
  - Drug ineffective [Unknown]
